FAERS Safety Report 11224901 (Version 1)
Quarter: 2015Q2

REPORT INFORMATION
  Report Type: Spontaneous
  Country: US (occurrence: None)
  Receive Date: 20150626
  Receipt Date: 20150626
  Transmission Date: 20150821
  Serious: Yes (Life-Threatening, Hospitalization)
  Sender: FDA-Public Use
  Company Number: None

PATIENT
  Age: 71 Year
  Sex: Male

DRUGS (1)
  1. ENBREL [Suspect]
     Active Substance: ETANERCEPT
     Indication: PSORIASIS
     Dates: start: 20140528, end: 20150429

REACTIONS (2)
  - Ventricular tachycardia [None]
  - Chest X-ray abnormal [None]

NARRATIVE: CASE EVENT DATE: 20150429
